FAERS Safety Report 8673634 (Version 3)
Quarter: 2013Q3

REPORT INFORMATION
  Report Type: Spontaneous
  Country: US (occurrence: US)
  Receive Date: 20120719
  Receipt Date: 20130717
  Transmission Date: 20140515
  Serious: Yes (Other)
  Sender: FDA-Public Use
  Company Number: US-BRISTOL-MYERS SQUIBB COMPANY-16687527

PATIENT
  Age: 87 Year
  Sex: Male

DRUGS (4)
  1. YERVOY [Suspect]
     Indication: METASTATIC MALIGNANT MELANOMA
     Dosage: 1ST, 11-MAY-12, 2ND 01-JUN-12, LAST DOSE ON 22-JUN-12.?80% OF DRUG WAS INFUSED AND THEN STOPPED.
     Route: 042
     Dates: start: 20120601
  2. ASPIRIN [Concomitant]
  3. NIMESULIDE [Concomitant]
  4. INSULIN [Concomitant]

REACTIONS (1)
  - Infusion related reaction [Recovered/Resolved]
